FAERS Safety Report 8122636-7 (Version None)
Quarter: 2012Q1

REPORT INFORMATION
  Report Type: 
  Country: None (occurrence: None)
  Receive Date: 20120208
  Receipt Date: 20120202
  Transmission Date: 20120608
  Serious: Yes (Hospitalization, Other)
  Sender: FDA-Public Use
  Company Number: US-ALEXION-A201101267

PATIENT
  Sex: Female

DRUGS (11)
  1. SOLIRIS [Suspect]
     Dosage: UNK
     Route: 042
     Dates: start: 20111226
  2. ATENOLOL [Concomitant]
     Dosage: 50 MG, QD
     Route: 048
  3. CIPROFLOXACIN [Concomitant]
     Dosage: 500 MG, BID
     Route: 048
  4. GABAPENTIN [Concomitant]
     Dosage: 300 MG, QD
     Route: 048
  5. DESFERAL [Concomitant]
     Indication: IRON OVERLOAD
     Dosage: 2GM/10ML, 3 X/WEEK
     Route: 058
  6. BUMEX [Concomitant]
     Dosage: 2 MG, QD
  7. FOLIC ACID [Concomitant]
     Dosage: 1 MG, QD
     Route: 048
  8. SOLIRIS [Suspect]
     Indication: PAROXYSMAL NOCTURNAL HAEMOGLOBINURIA
     Dosage: UNK
     Route: 042
     Dates: start: 20070901, end: 20111031
  9. AVAPRO [Concomitant]
     Dosage: 150 MG, QD
     Route: 048
  10. PROCRIT [Concomitant]
     Dosage: 60,000 UNITS, QW
     Route: 058
  11. VOLTAREN [Concomitant]
     Dosage: 2 G, QD
     Route: 061

REACTIONS (12)
  - HERPES ZOSTER [None]
  - PAIN IN EXTREMITY [None]
  - FURUNCLE [None]
  - ACUTE FEBRILE NEUTROPHILIC DERMATOSIS [None]
  - PYREXIA [None]
  - SEPSIS [None]
  - SKIN FIBROSIS [None]
  - HAEMOGLOBIN DECREASED [None]
  - SUPERINFECTION BACTERIAL [None]
  - CHILLS [None]
  - ABSCESS [None]
  - DEHYDRATION [None]
